FAERS Safety Report 5782687-4 (Version None)
Quarter: 2008Q2

REPORT INFORMATION
  Report Type: 
  Country: None (occurrence: None)
  Receive Date: 20080619
  Receipt Date: 20080619
  Transmission Date: 20081010
  Serious: No
  Sender: FDA-Public Use
  Company Number: None

PATIENT
  Age: 52 Year
  Sex: Female
  Weight: 74.3899 kg

DRUGS (1)
  1. ATENOLOL [Suspect]
     Indication: HEART RATE IRREGULAR
     Dosage: ONE PER DAY PO
     Route: 048
     Dates: start: 20080425, end: 20080618

REACTIONS (5)
  - DRUG INEFFECTIVE [None]
  - HEART RATE IRREGULAR [None]
  - OEDEMA PERIPHERAL [None]
  - PARAESTHESIA [None]
  - WEIGHT INCREASED [None]
